FAERS Safety Report 4622837-6 (Version None)
Quarter: 2005Q1

REPORT INFORMATION
  Report Type: 
  Country: None (occurrence: None)
  Receive Date: 20050330
  Receipt Date: 20050118
  Transmission Date: 20050727
  Serious: Yes (Hospitalization, Other)
  Sender: FDA-Public Use
  Company Number: US-GLAXOSMITHKLINE-A0541137A

PATIENT
  Age: 22 Year
  Sex: Male

DRUGS (3)
  1. WELLBUTRIN [Suspect]
     Indication: DRUG USE FOR UNKNOWN INDICATION
     Dosage: 150MG PER DAY
     Route: 048
  2. ALCOHOL [Suspect]
  3. LEXAPRO [Concomitant]
     Dosage: 40MG PER DAY

REACTIONS (2)
  - ALCOHOLIC PANCREATITIS [None]
  - DISEASE RECURRENCE [None]
